FAERS Safety Report 8984292 (Version 1)
Quarter: 2012Q4

REPORT INFORMATION
  Report Type: Spontaneous
  Country: DK (occurrence: None)
  Receive Date: 20121212
  Receipt Date: 20121212
  Transmission Date: 20130627
  Serious: Yes (Other)
  Sender: FDA-Public Use
  Company Number: 2012MA013922

PATIENT
  Age: 74 Year
  Sex: Female

DRUGS (14)
  1. PANTOPRAZOLE SODIUM [Suspect]
     Indication: GASTROESOPHAGEAL REFLUX
     Route: 048
     Dates: start: 1999
  2. FLUTICASONE [Concomitant]
  3. LACRI-LUBE [Concomitant]
  4. LOSARTAN [Concomitant]
  5. MOTILIUM [Concomitant]
  6. AMITRIPTYLINE [Concomitant]
  7. CELLUVISC [Concomitant]
  8. GLANDOSANE [Concomitant]
  9. CHLORAMPHENICOL [Concomitant]
  10. REPLENS [Concomitant]
  11. PARACETAMOL [Concomitant]
  12. CODEINE [Concomitant]
  13. CALFOVIT D3 [Concomitant]
  14. ALENDRONIC ACID [Concomitant]

REACTIONS (1)
  - Pernicious anaemia [None]
